FAERS Safety Report 16867543 (Version 1)
Quarter: 2019Q3

REPORT INFORMATION
  Report Type: Spontaneous
  Country: US (occurrence: US)
  Receive Date: 20190930
  Receipt Date: 20190930
  Transmission Date: 20191005
  Serious: No
  Sender: FDA-Public Use
  Company Number: US-INDIVIOR US-INDV-120557-2019

PATIENT
  Age: 39 Year
  Sex: Male

DRUGS (1)
  1. SUBLOCADE [Suspect]
     Active Substance: BUPRENORPHINE
     Indication: DRUG DEPENDENCE
     Dosage: 300 MILLIGRAM, QMO (3 INJECTIONS)
     Route: 058
     Dates: start: 20190710

REACTIONS (5)
  - Incorrect dose administered [Recovered/Resolved]
  - Therapeutic product effect incomplete [Recovered/Resolved]
  - Wrong technique in product usage process [Recovered/Resolved]
  - Injection site swelling [Not Recovered/Not Resolved]
  - Injection site infection [Recovering/Resolving]

NARRATIVE: CASE EVENT DATE: 2019
